FAERS Safety Report 4453013-8 (Version None)
Quarter: 2004Q3

REPORT INFORMATION
  Report Type: 
  Country: None (occurrence: None)
  Receive Date: 20040916
  Receipt Date: 20040907
  Transmission Date: 20050211
  Serious: Yes (Other)
  Sender: FDA-Public Use
  Company Number: 2004232273US

PATIENT
  Sex: Female

DRUGS (4)
  1. PROVERA [Suspect]
     Dates: start: 19980618, end: 20010630
  2. PREMARIN [Suspect]
     Dates: start: 19961101, end: 20010630
  3. OGEN [Suspect]
     Dates: start: 19980617, end: 20010630
  4. PREMPRO [Suspect]
     Dates: start: 19961101, end: 20010630

REACTIONS (1)
  - BREAST CANCER FEMALE [None]
